FAERS Safety Report 25112234 (Version 1)
Quarter: 2025Q1

REPORT INFORMATION
  Report Type: Spontaneous
  Country: US (occurrence: None)
  Receive Date: 20250321
  Receipt Date: 20250321
  Transmission Date: 20250409
  Serious: Yes (Other)
  Sender: FDA-CTU
  Company Number: None

PATIENT
  Age: 48 Year
  Sex: Female
  Weight: 62.1 kg

DRUGS (10)
  1. NURTEC ODT [Suspect]
     Active Substance: RIMEGEPANT SULFATE
     Indication: Migraine
     Dosage: ?1 TABLET DAILY ORAL
     Route: 048
     Dates: start: 20250318, end: 20250318
  2. LEVOTHYROXINE [Concomitant]
     Active Substance: LEVOTHYROXINE
  3. TRINTELLIX [Concomitant]
     Active Substance: VORTIOXETINE HYDROBROMIDE
  4. FLONASE [Concomitant]
     Active Substance: FLUTICASONE PROPIONATE
  5. FEXOFENADINE [Concomitant]
     Active Substance: FEXOFENADINE HYDROCHLORIDE
  6. ADDERALL [Concomitant]
     Active Substance: AMPHETAMINE ASPARTATE\AMPHETAMINE SULFATE\DEXTROAMPHETAMINE SACCHARATE\DEXTROAMPHETAMINE SULFATE
  7. ESTRADIOL [Concomitant]
     Active Substance: ESTRADIOL
  8. ATIVAN [Concomitant]
     Active Substance: LORAZEPAM
  9. LAMICTAL [Concomitant]
     Active Substance: LAMOTRIGINE
  10. LEVOCETIRIZINE [Concomitant]
     Active Substance: LEVOCETIRIZINE

REACTIONS (8)
  - Abdominal pain upper [None]
  - Diarrhoea [None]
  - Cold sweat [None]
  - Feeling of body temperature change [None]
  - Gastrooesophageal reflux disease [None]
  - Vomiting [None]
  - Asthenia [None]
  - Feeding disorder [None]

NARRATIVE: CASE EVENT DATE: 20250318
